FAERS Safety Report 17500263 (Version 1)
Quarter: 2020Q1

REPORT INFORMATION
  Report Type: Spontaneous
  Country: US (occurrence: US)
  Receive Date: 20200305
  Receipt Date: 20200305
  Transmission Date: 20200409
  Serious: No
  Sender: FDA-Public Use
  Company Number: US-GW PHARMA-202002USGW00790

PATIENT

DRUGS (1)
  1. EPIDIOLEX [Suspect]
     Active Substance: CANNABIDIOL
     Indication: EPILEPSY
     Dosage: 440 MILLIGRAM, BID
     Route: 048
     Dates: start: 20190121

REACTIONS (3)
  - Screaming [Unknown]
  - Insomnia [Unknown]
  - Intentional self-injury [Recovering/Resolving]
